FAERS Safety Report 6032713-2 (Version None)
Quarter: 2009Q1

REPORT INFORMATION
  Report Type: 
  Country: None (occurrence: None)
  Receive Date: 20090107
  Receipt Date: 20081230
  Transmission Date: 20090719
  Serious: Yes (Hospitalization)
  Sender: FDA-Public Use
  Company Number: CERZ-1000455

PATIENT
  Age: 28 Year
  Sex: Female
  Weight: 47.2 kg

DRUGS (3)
  1. CEREZYME [Suspect]
     Indication: GAUCHER'S DISEASE
     Dosage: 2950 U, Q2W, INTRAVENOUS
     Route: 042
     Dates: start: 20060101
  2. LORTAB (PARACETAMOL, PROMETHAZINE HYDROCHLORIDE) [Concomitant]
  3. ACTONEL [Concomitant]

REACTIONS (4)
  - ESCHERICHIA URINARY TRACT INFECTION [None]
  - INFUSION RELATED REACTION [None]
  - LEUKOCYTOSIS [None]
  - SEPSIS [None]
